FAERS Safety Report 7345573-4 (Version None)
Quarter: 2011Q1

REPORT INFORMATION
  Report Type: 
  Country: None (occurrence: None)
  Receive Date: 20110310
  Receipt Date: 20110308
  Transmission Date: 20110831
  Serious: Yes (Other)
  Sender: FDA-Public Use
  Company Number: A0857806A

PATIENT
  Sex: Male

DRUGS (2)
  1. AVANDARYL [Suspect]
     Route: 048
     Dates: start: 20060418, end: 20070613
  2. AVANDIA [Suspect]
     Route: 048
     Dates: start: 20060524, end: 20070602

REACTIONS (2)
  - CARDIOVASCULAR DISORDER [None]
  - HEART INJURY [None]
